FAERS Safety Report 23102097 (Version 1)
Quarter: 2023Q4

REPORT INFORMATION
  Report Type: Spontaneous
  Country: FR (occurrence: None)
  Receive Date: 20231025
  Receipt Date: 20231025
  Transmission Date: 20240110
  Serious: Yes (Other)
  Sender: FDA-Public Use
  Company Number: FR-Orion Corporation ORION PHARMA-TREX2023-0252

PATIENT
  Age: 47 Year
  Sex: Female

DRUGS (2)
  1. METHOTREXATE [Suspect]
     Active Substance: METHOTREXATE
     Indication: Axial spondyloarthritis
     Dosage: ON TUESDAY
     Dates: start: 202201, end: 202208
  2. XELJANZ [Concomitant]
     Active Substance: TOFACITINIB CITRATE
     Indication: Axial spondyloarthritis
     Dates: start: 202201, end: 202208

REACTIONS (2)
  - Breast cancer [Not Recovered/Not Resolved]
  - Product use in unapproved indication [Unknown]
